FAERS Safety Report 4801178-8 (Version None)
Quarter: 2005Q4

REPORT INFORMATION
  Report Type: 
  Country: None (occurrence: None)
  Receive Date: 20051011
  Receipt Date: 20051004
  Transmission Date: 20060501
  Serious: Yes (Other)
  Sender: FDA-Public Use
  Company Number: 200510623BNE

PATIENT
  Age: 66 Year
  Sex: Male

DRUGS (6)
  1. ASPIRIN [Suspect]
  2. PLAVIX [Suspect]
     Indication: CHEST PAIN
     Dosage: 75 MG, TOTAL DAILY, ORAL
     Route: 048
     Dates: start: 20040901
  3. PLAVIX [Suspect]
     Indication: STENT PLACEMENT
     Dosage: 75 MG, TOTAL DAILY, ORAL
     Route: 048
     Dates: start: 20040901
  4. BISOPROLOL [Concomitant]
  5. GLICLAZIDE [Concomitant]
  6. LANSOPRAZOLE [Concomitant]

REACTIONS (4)
  - ANAEMIA [None]
  - CHEST PAIN [None]
  - GASTRIC ULCER [None]
  - HAEMORRHAGE [None]
